FAERS Safety Report 7372236-1 (Version None)
Quarter: 2011Q1

REPORT INFORMATION
  Report Type: 
  Country: None (occurrence: None)
  Receive Date: 20110324
  Receipt Date: 20110316
  Transmission Date: 20110831
  Serious: Yes (Other)
  Sender: FDA-Public Use
  Company Number: A0751234A

PATIENT
  Sex: Female

DRUGS (1)
  1. AVANDIA [Suspect]
     Route: 048

REACTIONS (6)
  - ARTERIAL OCCLUSIVE DISEASE [None]
  - ANGINA UNSTABLE [None]
  - ATRIAL FIBRILLATION [None]
  - OEDEMA [None]
  - INSULIN RESISTANCE [None]
  - CARDIAC DISORDER [None]
